FAERS Safety Report 10203692 (Version 1)
Quarter: 2014Q2

REPORT INFORMATION
  Report Type: Spontaneous
  Country: US (occurrence: None)
  Receive Date: 20140523
  Receipt Date: 20140523
  Transmission Date: 20141212
  Serious: Yes (Other)
  Sender: FDA-Public Use
  Company Number: 2014-US-006073

PATIENT
  Age: 55 Year
  Sex: Male

DRUGS (1)
  1. XYREM (SODIUM OXYBATE) ORAL SOLUTION, 500MG/ML [Suspect]
     Indication: SOMNOLENCE
     Route: 048
     Dates: start: 201302, end: 2013

REACTIONS (2)
  - Device related infection [None]
  - Off label use [None]
